FAERS Safety Report 6767077-X (Version None)
Quarter: 2010Q2

REPORT INFORMATION
  Report Type: 
  Country: None (occurrence: None)
  Receive Date: 20100613
  Receipt Date: 20100607
  Transmission Date: 20101027
  Serious: Yes (Other)
  Sender: FDA-Public Use
  Company Number: GB-ALLERGAN-1004100US

PATIENT
  Age: 39 Year
  Sex: Female

DRUGS (2)
  1. BOTULINUM TOXIN TYPE A [Suspect]
     Indication: SKIN WRINKLING
     Dosage: UNK
     Route: 058
     Dates: start: 20100303, end: 20100303
  2. PROPRANOLOL [Concomitant]
     Indication: ANXIETY
     Dosage: 80 MG, UNK
     Route: 048
     Dates: start: 20100208

REACTIONS (3)
  - PHOTOPSIA [None]
  - VITREOUS DETACHMENT [None]
  - VITREOUS FLOATERS [None]
